FAERS Safety Report 6146053-4 (Version None)
Quarter: 2009Q2

REPORT INFORMATION
  Report Type: 
  Country: None (occurrence: None)
  Receive Date: 20090406
  Receipt Date: 20090406
  Transmission Date: 20091009
  Serious: Yes (Disabling)
  Sender: FDA-Public Use
  Company Number: None

PATIENT
  Age: 63 Year
  Sex: Female
  Weight: 83.9154 kg

DRUGS (1)
  1. ANTABUSE [Suspect]
     Indication: ALCOHOL USE
     Dosage: 250 MG DAILY PO
     Route: 048
     Dates: start: 20090120, end: 20090401

REACTIONS (6)
  - BREAST PAIN [None]
  - BREATH ODOUR [None]
  - HYPERAESTHESIA [None]
  - LIP BLISTER [None]
  - ORAL PAIN [None]
  - PARAESTHESIA [None]
